FAERS Safety Report 8972143 (Version 1)
Quarter: 2012Q4

REPORT INFORMATION
  Report Type: Report from Study
  Country: DE (occurrence: DE)
  Receive Date: 20121218
  Receipt Date: 20121218
  Transmission Date: 20130627
  Serious: Yes (Hospitalization)
  Sender: FDA-Public Use
  Company Number: DE-JNJFOC-20110404892

PATIENT
  Age: 81 Year
  Sex: Male
  Weight: 75 kg

DRUGS (10)
  1. PALEXIA RETARD [Suspect]
     Indication: PAIN
     Route: 048
  2. PALEXIA RETARD [Suspect]
     Indication: PAIN
     Route: 048
     Dates: start: 20110112
  3. PALEXIA RETARD [Suspect]
     Indication: ARTHRALGIA
     Route: 048
  4. PALEXIA RETARD [Suspect]
     Indication: ARTHRALGIA
     Route: 048
     Dates: start: 20110112
  5. PALEXIA RETARD [Suspect]
     Indication: BACK PAIN
     Route: 048
  6. PALEXIA RETARD [Suspect]
     Indication: BACK PAIN
     Route: 048
     Dates: start: 20110112
  7. HYDROMORPHONE [Concomitant]
     Indication: PAIN
  8. METAMIZOLE [Concomitant]
     Indication: PAIN
  9. NSAID^S [Concomitant]
     Indication: PAIN
  10. LAXATIVES [Concomitant]

REACTIONS (1)
  - Cardiac failure [Unknown]
